FAERS Safety Report 6479629-5 (Version None)
Quarter: 2009Q4

REPORT INFORMATION
  Report Type: 
  Country: None (occurrence: None)
  Receive Date: 20091208
  Receipt Date: 20091130
  Transmission Date: 20100525
  Serious: Yes (Other)
  Sender: FDA-Public Use
  Company Number: FR-ASTRAZENECA-2009SE29531

PATIENT
  Age: 78 Year
  Sex: Female

DRUGS (3)
  1. ENTOCORT EC [Suspect]
     Indication: AUTOIMMUNE HEPATITIS
     Route: 048
     Dates: start: 20090916
  2. IMUREL [Suspect]
     Indication: AUTOIMMUNE HEPATITIS
     Route: 048
     Dates: start: 20090916
  3. CALCIPRAT VITAMIN D3 [Concomitant]
     Route: 048
     Dates: start: 20090916

REACTIONS (1)
  - URTICARIA [None]
